FAERS Safety Report 5286969-4 (Version None)
Quarter: 2007Q1

REPORT INFORMATION
  Report Type: 
  Country: None (occurrence: None)
  Receive Date: 20070329
  Receipt Date: 20070319
  Transmission Date: 20070707
  Serious: Yes (Other)
  Sender: FDA-Public Use
  Company Number: GXKR2007FR02672

PATIENT
  Age: 77 Year
  Sex: Male

DRUGS (1)
  1. AMOXICILLINE + CLAVULANATE (NAGX) (AMOXICILLINE, CLAVULANATE) UNKNOWN [Suspect]
     Dosage: 1125 MG,

REACTIONS (1)
  - MYCOSIS FUNGOIDES [None]
